FAERS Safety Report 5511317-1 (Version None)
Quarter: 2007Q4

REPORT INFORMATION
  Report Type: 
  Country: None (occurrence: None)
  Receive Date: 20071109
  Receipt Date: 20070821
  Transmission Date: 20080405
  Serious: No
  Sender: FDA-Public Use
  Company Number: A0673466A

PATIENT

DRUGS (1)
  1. ALTABAX [Suspect]
     Indication: SKIN INFECTION
     Dosage: 1APP SINGLE DOSE
     Route: 061

REACTIONS (2)
  - APPLICATION SITE IRRITATION [None]
  - THERMAL BURN [None]
